FAERS Safety Report 11049850 (Version 2)
Quarter: 2020Q4

REPORT INFORMATION
  Report Type: Spontaneous
  Country: US (occurrence: US)
  Receive Date: 20150420
  Receipt Date: 20201031
  Transmission Date: 20210113
  Serious: Yes (Death, Other)
  Sender: FDA-Public Use
  Company Number: US-MUNDIPHARMA DS AND PHARMACOVIGILANCE-USA-2014-0118339

PATIENT
  Age: 20 Year
  Sex: Male

DRUGS (1)
  1. OXYCONTIN [Suspect]
     Active Substance: OXYCODONE HYDROCHLORIDE
     Indication: DRUG ABUSE
     Dosage: UNKNOWN
     Route: 048

REACTIONS (4)
  - Depression [Unknown]
  - Drug abuse [Unknown]
  - Drug dependence [Unknown]
  - Overdose [Fatal]
